FAERS Safety Report 12834412 (Version 1)
Quarter: 2016Q4

REPORT INFORMATION
  Report Type: Spontaneous
  Country: HR (occurrence: HR)
  Receive Date: 20161010
  Receipt Date: 20161010
  Transmission Date: 20170207
  Serious: Yes (Hospitalization)
  Sender: FDA-Public Use
  Company Number: PHHY2016HR135988

PATIENT
  Age: 23 Year
  Sex: Male

DRUGS (1)
  1. KLIMICIN [Suspect]
     Active Substance: CLINDAMYCIN PHOSPHATE
     Indication: DENTAL PULP DISORDER
     Dosage: 300 MG, QID
     Route: 048
     Dates: start: 20160909, end: 20160911

REACTIONS (3)
  - Chest discomfort [Recovering/Resolving]
  - Back pain [Recovering/Resolving]
  - Oesophageal pain [Recovering/Resolving]

NARRATIVE: CASE EVENT DATE: 20160910
